FAERS Safety Report 24737354 (Version 1)
Quarter: 2024Q4

REPORT INFORMATION
  Report Type: Spontaneous
  Country: US (occurrence: None)
  Receive Date: 20241213
  Receipt Date: 20241213
  Transmission Date: 20250114
  Serious: Yes (Hospitalization)
  Sender: Public
  Company Number: None

PATIENT
  Age: 79 Year
  Sex: Male
  Weight: 73 kg

DRUGS (1)
  1. PACLITAXEL [Suspect]
     Active Substance: PACLITAXEL
     Indication: Neoplasm malignant
     Dosage: OTHER FREQUENCY : ONCE;?
     Route: 042
     Dates: start: 20240729, end: 20240729

REACTIONS (3)
  - Arthralgia [None]
  - Myalgia [None]
  - Pneumonia [None]

NARRATIVE: CASE EVENT DATE: 20240802
